FAERS Safety Report 7183403-4 (Version None)
Quarter: 2010Q4

REPORT INFORMATION
  Report Type: 
  Country: None (occurrence: None)
  Receive Date: 20101220
  Receipt Date: 20101220
  Transmission Date: 20110411
  Serious: Yes (Hospitalization)
  Sender: FDA-Public Use
  Company Number: None

PATIENT
  Age: 73 Year
  Sex: Female
  Weight: 66 kg

DRUGS (13)
  1. CIPRO [Suspect]
     Indication: URINARY TRACT INFECTION
     Dosage: PO RECENT
     Route: 048
  2. GABAPENTIN [Concomitant]
  3. METOPROLOL TARTRATE [Concomitant]
  4. SIMVASTATIN [Concomitant]
  5. FOLIC ACID [Concomitant]
  6. LISINOPRIL [Concomitant]
  7. KLONOPIN [Concomitant]
  8. M.V.I. [Concomitant]
  9. ALLOPURINOL [Concomitant]
  10. SENOKOT [Concomitant]
  11. TYLENOL [Concomitant]
  12. ATARAX [Concomitant]
  13. PERCOCET [Concomitant]

REACTIONS (1)
  - DERMATITIS ALLERGIC [None]
